FAERS Safety Report 5927468-3 (Version None)
Quarter: 2008Q4

REPORT INFORMATION
  Report Type: 
  Country: None (occurrence: None)
  Receive Date: 20081023
  Receipt Date: 20081010
  Transmission Date: 20090506
  Serious: Yes (Hospitalization, Other)
  Sender: FDA-Public Use
  Company Number: FR-BAYER-200825023GPV

PATIENT
  Age: 76 Year
  Sex: Female

DRUGS (4)
  1. CIPROFLOXACIN HYDROCHLORIDE [Suspect]
     Indication: BRONCHITIS CHRONIC
     Dosage: UNIT DOSE: 500 MG
     Route: 048
     Dates: start: 20080701, end: 20080701
  2. UNSPECIFIED ANTIBIOTIC [Concomitant]
     Indication: BRONCHITIS CHRONIC
     Route: 065
     Dates: end: 20080701
  3. TAHOR [Concomitant]
     Indication: DRUG USE FOR UNKNOWN INDICATION
     Route: 065
  4. ANTICOAGULANT [Concomitant]
     Indication: DRUG USE FOR UNKNOWN INDICATION
     Route: 065

REACTIONS (4)
  - GROIN PAIN [None]
  - RASH [None]
  - RASH MACULAR [None]
  - TENDON RUPTURE [None]
